FAERS Safety Report 8836708 (Version 1)
Quarter: 2012Q4

REPORT INFORMATION
  Report Type: Spontaneous
  Country: FR (occurrence: None)
  Receive Date: 20121010
  Receipt Date: 20121010
  Transmission Date: 20130627
  Serious: Yes (Death, Life-Threatening, Hospitalization, Disabling)
  Sender: FDA-Public Use
  Company Number: FRA-CLT-2012068

PATIENT
  Age: 2 Year
  Sex: Male

DRUGS (7)
  1. CYSTADANE [Suspect]
     Indication: HOMOCYSTINURIA
     Route: 048
     Dates: start: 20070427, end: 20070505
  2. CYSTADANE [Suspect]
     Indication: HOMOCYSTINURIA
     Route: 048
     Dates: start: 20070525, end: 20120414
  3. LEVOCARNIL [Concomitant]
  4. FOLINORAL [Concomitant]
  5. L-CARNITINE [Concomitant]
  6. FOLINIC ACID [Concomitant]
  7. VITAMIN B12 [Concomitant]

REACTIONS (3)
  - Respiratory distress [None]
  - Pulmonary hypertension [None]
  - Interstitial lung disease [None]
